FAERS Safety Report 11807255 (Version 1)
Quarter: 2015Q4

REPORT INFORMATION
  Report Type: Spontaneous
  Country: US (occurrence: US)
  Receive Date: 20151207
  Receipt Date: 20151207
  Transmission Date: 20160305
  Serious: Yes (Other)
  Sender: FDA-Public Use
  Company Number: US-TARO PHARMACEUTICALS USA.,INC-2015SUN02263

PATIENT
  Age: 83 Year
  Sex: Male

DRUGS (2)
  1. ENOXAPARIN [Suspect]
     Active Substance: ENOXAPARIN
     Indication: PRODUCT USED FOR UNKNOWN INDICATION
     Dosage: 100 MG, TWICE A DAY
  2. WARFARIN [Suspect]
     Active Substance: WARFARIN
     Indication: ATRIAL FIBRILLATION
     Route: 065

REACTIONS (8)
  - Haemoglobin decreased [Not Recovered/Not Resolved]
  - Deep vein thrombosis [Unknown]
  - Hypotension [Unknown]
  - Pulmonary embolism [Unknown]
  - Malaise [Unknown]
  - Muscle haemorrhage [Recovered/Resolved]
  - Rebound effect [Unknown]
  - Nausea [Unknown]
